FAERS Safety Report 9781757 (Version 2)
Quarter: 2014Q1

REPORT INFORMATION
  Report Type: Spontaneous
  Country: US (occurrence: US)
  Receive Date: 20131225
  Receipt Date: 20140305
  Transmission Date: 20141002
  Serious: No
  Sender: FDA-Public Use
  Company Number: US-B.I. PHARMACEUTICALS,INC./RIDGEFIELD-2013-BI-41619BP

PATIENT
  Age: 89 Year
  Sex: Female

DRUGS (11)
  1. COMBIVENT [Suspect]
     Indication: PRODUCT USED FOR UNKNOWN INDICATION
     Dosage: DOSE PER APPLICATION: 20 MCG / 100 MCG; DAILY DOSE: 120 MCG / 600 MCG
     Route: 055
     Dates: start: 201309
  2. LORTAB 7.5 [Concomitant]
     Route: 048
  3. NEXIUM [Concomitant]
     Dosage: 40 MG
     Route: 048
  4. AMLODIPINE [Concomitant]
     Dosage: 10 MG
     Route: 048
  5. DIAZEPAM [Concomitant]
     Dosage: 30 MG
     Route: 048
  6. KLOR-CON [Concomitant]
     Dosage: 10 MEQ
     Route: 048
  7. LEVOTHYROXINE [Concomitant]
     Dosage: 88 MCG
     Route: 048
  8. METOCLOPRAMIDE [Concomitant]
     Dosage: 4 ANZ
     Route: 048
  9. VENTOLIN [Concomitant]
     Route: 055
  10. SPIRIVA [Concomitant]
     Dosage: 18 MCG
     Route: 055
  11. TIZANIDINE [Concomitant]
     Dosage: 2 ANZ
     Route: 048

REACTIONS (2)
  - Dyspnoea [Unknown]
  - Product quality issue [Recovered/Resolved]
